FAERS Safety Report 15060568 (Version 1)
Quarter: 2018Q2

REPORT INFORMATION
  Report Type: Spontaneous
  Country: US (occurrence: US)
  Receive Date: 20180625
  Receipt Date: 20180625
  Transmission Date: 20180711
  Serious: No
  Sender: FDA-Public Use
  Company Number: US-PFIZER INC-2018190039

PATIENT
  Age: 73 Year
  Sex: Female
  Weight: 58 kg

DRUGS (2)
  1. CYTOMEL [Suspect]
     Active Substance: LIOTHYRONINE SODIUM
     Dosage: 25 UG, UNK
  2. CYTOMEL [Suspect]
     Active Substance: LIOTHYRONINE SODIUM
     Indication: AUTOIMMUNE THYROIDITIS
     Dosage: 25 UG, UNK
     Route: 060
     Dates: start: 2015

REACTIONS (2)
  - Incorrect route of drug administration [Unknown]
  - Drug ineffective [Unknown]
